FAERS Safety Report 4294114-7 (Version None)
Quarter: 2004Q1

REPORT INFORMATION
  Report Type: 
  Country: None (occurrence: None)
  Receive Date: 20040212
  Receipt Date: 20040203
  Transmission Date: 20041129
  Serious: Yes (Hospitalization)
  Sender: FDA-Public Use
  Company Number: FLUV00304000321

PATIENT
  Age: 74 Year
  Sex: Female

DRUGS (6)
  1. FLUVOXAMINE MALEATE [Suspect]
     Indication: DYSTHYMIC DISORDER
     Dosage: 25 MG DAILY PO
     Route: 048
     Dates: end: 20001227
  2. ATACAND [Concomitant]
  3. CAPTOPRIL [Concomitant]
  4. SERC [Concomitant]
  5. LORAZEPAM [Concomitant]
  6. DEBRIDAT 100 MG (TRIMEBUTINE MALEATE) [Concomitant]

REACTIONS (7)
  - BLOOD FIBRINOGEN INCREASED [None]
  - BLOOD PRESSURE INCREASED [None]
  - BRONCHIAL INFECTION [None]
  - INAPPROPRIATE ANTIDIURETIC HORMONE SECRETION [None]
  - JOINT INJURY [None]
  - PLATELET COUNT DECREASED [None]
  - SUPERINFECTION LUNG [None]
